FAERS Safety Report 6826122-3 (Version None)
Quarter: 2010Q3

REPORT INFORMATION
  Report Type: 
  Country: None (occurrence: None)
  Receive Date: 20100709
  Receipt Date: 20100625
  Transmission Date: 20110219
  Serious: Yes (Other)
  Sender: FDA-Public Use
  Company Number: HU-ELI_LILLY_AND_COMPANY-HU201006007222

PATIENT
  Sex: Male
  Weight: 99 kg

DRUGS (23)
  1. GEMCITABINE HYDROCHLORIDE [Suspect]
     Indication: NON-SMALL CELL LUNG CANCER
     Dosage: 2625 MG, 2 IN 3 WEEKS
     Route: 042
     Dates: start: 20100330
  2. CISPLATIN [Suspect]
     Indication: NON-SMALL CELL LUNG CANCER
     Dosage: 157 MG 1 IN 3 WEEKS
     Route: 042
     Dates: start: 20100330
  3. OTHER PHARMA COMPANY INV DRUG [Suspect]
     Indication: NON-SMALL CELL LUNG CANCER
     Dosage: 800 MG 2 IN 3 WEEKS
     Route: 042
     Dates: start: 20100330
  4. POTASSIUM CHLORIDE [Concomitant]
     Indication: SUPPLEMENTATION THERAPY
  5. EMETRON [Concomitant]
     Indication: ANTIEMETIC SUPPORTIVE CARE
     Dosage: 8 MG, UNKNOWN
     Route: 065
  6. EMETRON [Concomitant]
     Dosage: 8 MG, 2/D
     Route: 065
     Dates: start: 20100421
  7. EMETRON [Concomitant]
     Dosage: 8 MG, 2/D
     Route: 065
     Dates: start: 20100421
  8. DOXILEK [Concomitant]
     Indication: DIABETES MELLITUS
     Dosage: UNK, UNKNOWN
     Route: 065
     Dates: start: 19900101
  9. TRENTAL [Concomitant]
     Indication: ARTERIOSCLEROSIS
     Dosage: UNK, UNKNOWN
     Route: 065
     Dates: start: 19900101
  10. RANITIDINE HCL [Concomitant]
     Indication: GASTRITIS
     Dosage: UNK, UNKNOWN
     Route: 065
     Dates: start: 19900101
  11. AMILOSIDE [Concomitant]
     Indication: MYOCARDIAL ISCHAEMIA
     Dosage: UNK, UNKNOWN
     Route: 065
     Dates: start: 19900101
  12. BETALOC ZOK [Concomitant]
     Indication: MYOCARDIAL ISCHAEMIA
     Dosage: UNK, UNKNOWN
     Route: 065
     Dates: start: 20000101
  13. ASPIRIN [Concomitant]
     Indication: MYOCARDIAL ISCHAEMIA
     Dosage: UNK, UNKNOWN
     Route: 065
     Dates: start: 20000101, end: 20100503
  14. SERETIDE [Concomitant]
     Indication: CHRONIC OBSTRUCTIVE PULMONARY DISEASE
     Dosage: UNK, UNKNOWN
     Route: 065
     Dates: start: 20100203, end: 20100427
  15. SALSOL A [Concomitant]
     Indication: DEHYDRATION
     Dates: start: 20100330, end: 20100330
  16. SALSOL A [Concomitant]
     Dosage: UNK, UNKNOWN
     Route: 065
     Dates: start: 20100420, end: 20100420
  17. SALSOL A [Concomitant]
     Dates: start: 20100511, end: 20100511
  18. FUROSEMID [Concomitant]
     Indication: DEHYDRATION
     Dosage: UNK, UNKNOWN
     Route: 065
     Dates: start: 20100330, end: 20100330
  19. FUROSEMID [Concomitant]
     Dosage: UNK, UNKNOWN
     Route: 065
     Dates: start: 20100420, end: 20100420
  20. FUROSEMID [Concomitant]
     Dosage: UNK, UNKNOWN
     Route: 065
     Dates: start: 20100511, end: 20100511
  21. VITAMIN B6 [Concomitant]
     Indication: NAUSEA
     Dosage: UNK, UNKNOWN
     Route: 065
     Dates: start: 20100330, end: 20100330
  22. VITAMIN B6 [Concomitant]
     Dosage: UNK, UNKNOWN
     Route: 065
     Dates: start: 20100420, end: 20100420
  23. AVELOX [Concomitant]
     Indication: PYREXIA
     Dosage: UNK, DAILY (1/D)
     Route: 048
     Dates: start: 20100419

REACTIONS (1)
  - HYPOPHOSPHATAEMIA [None]
